FAERS Safety Report 6694566-9 (Version None)
Quarter: 2010Q2

REPORT INFORMATION
  Report Type: 
  Country: None (occurrence: None)
  Receive Date: 20100423
  Receipt Date: 20100415
  Transmission Date: 20101027
  Serious: Yes (Other)
  Sender: FDA-Public Use
  Company Number: FR-MERCK-1004FRA00062

PATIENT
  Age: 62 Year
  Sex: Female

DRUGS (6)
  1. EMEND [Suspect]
     Indication: NAUSEA
     Route: 048
     Dates: start: 20100217, end: 20100217
  2. EMEND [Suspect]
     Route: 048
     Dates: start: 20100218, end: 20100219
  3. DOCETAXEL [Suspect]
     Indication: BREAST CANCER STAGE IV
     Route: 042
     Dates: start: 20100217, end: 20100217
  4. DOCETAXEL [Suspect]
     Route: 042
     Dates: start: 20100217, end: 20100217
  5. PREDNISONE [Suspect]
     Indication: NAUSEA
     Route: 048
     Dates: start: 20100217, end: 20100217
  6. [THERAPY UNSPECIFIED] [Suspect]
     Indication: NAUSEA
     Route: 065

REACTIONS (1)
  - PALMAR-PLANTAR ERYTHRODYSAESTHESIA SYNDROME [None]
